FAERS Safety Report 4586549-X (Version None)
Quarter: 2005Q1

REPORT INFORMATION
  Report Type: 
  Country: None (occurrence: None)
  Receive Date: 20050218
  Receipt Date: 20040311
  Transmission Date: 20050727
  Serious: Yes (Other)
  Sender: FDA-Public Use
  Company Number: US-BRISTOL-MYERS SQUIBB COMPANY-12530515

PATIENT
  Age: 47 Year
  Sex: Female

DRUGS (5)
  1. TAXOL [Suspect]
     Indication: BREAST CANCER
     Dosage: STOPPED AFTER 5 MIN, THEN RESTARTED
     Route: 042
     Dates: start: 20040107, end: 20040107
  2. ALOXI [Suspect]
     Indication: ANTIEMETIC SUPPORTIVE CARE
     Route: 042
     Dates: start: 20040107, end: 20040107
  3. RANITIDINE [Concomitant]
     Dates: start: 20040107, end: 20040107
  4. DIPHENHYDRAMINE HCL [Concomitant]
     Dates: start: 20040107, end: 20040107
  5. DEXAMETHASONE [Concomitant]
     Dates: start: 20040107, end: 20040107

REACTIONS (3)
  - DYSPNOEA [None]
  - ERYTHEMA [None]
  - SWELLING FACE [None]
